FAERS Safety Report 5498103-6 (Version None)
Quarter: 2007Q4

REPORT INFORMATION
  Report Type: 
  Country: None (occurrence: None)
  Receive Date: 20071025
  Receipt Date: 20071015
  Transmission Date: 20080405
  Serious: Yes (Hospitalization)
  Sender: FDA-Public Use
  Company Number: GR-ABBOTT-07P-066-0420641-00

PATIENT
  Age: 62 Year
  Sex: Female
  Weight: 57 kg

DRUGS (5)
  1. HUMIRA [Suspect]
     Indication: RHEUMATOID ARTHRITIS
     Route: 058
     Dates: start: 20061115, end: 20070901
  2. THYRORMONE [Concomitant]
     Indication: HYPOTHYROIDISM
     Route: 048
     Dates: start: 20070801
  3. METHOTREXATE [Concomitant]
     Indication: RHEUMATOID ARTHRITIS
     Route: 048
     Dates: start: 19920101
  4. DIGOXIN [Concomitant]
     Indication: ATRIAL FIBRILLATION
     Route: 048
     Dates: start: 20070105
  5. RANITIDINE HYDROCHLORIDE [Concomitant]
     Indication: DYSPEPSIA
     Route: 048
     Dates: start: 19971219

REACTIONS (1)
  - WEIGHT DECREASED [None]
